FAERS Safety Report 8661306 (Version 2)
Quarter: 2013Q3

REPORT INFORMATION
  Report Type: Report from Study
  Country: US (occurrence: US)
  Receive Date: 20120712
  Receipt Date: 20130731
  Transmission Date: 20140515
  Serious: No
  Sender: FDA-Public Use
  Company Number: PHEH2012US013454

PATIENT
  Age: 62 Year
  Sex: Female
  Weight: 74.83 kg

DRUGS (12)
  1. TASIGNA [Suspect]
     Dosage: 300 MG, BID
     Route: 048
  2. ALEVE [Concomitant]
  3. HYDREA [Concomitant]
  4. PROMETRIUM [Concomitant]
  5. LASIX [Concomitant]
  6. SYNTHROID [Concomitant]
  7. VIVELLE [Concomitant]
  8. PRILOSEC [Concomitant]
  9. ALLOPURINOL [Concomitant]
  10. PYRIDIUM [Concomitant]
  11. ACIDOPHILUS [Concomitant]
  12. PROBIOTICS NOS [Concomitant]

REACTIONS (4)
  - Rash generalised [Unknown]
  - Diarrhoea [Unknown]
  - Abdominal discomfort [Unknown]
  - Nausea [Unknown]
